FAERS Safety Report 24704552 (Version 1)
Quarter: 2024Q4

REPORT INFORMATION
  Report Type: Report from Study
  Country: BR (occurrence: BR)
  Receive Date: 20241206
  Receipt Date: 20241206
  Transmission Date: 20250114
  Serious: Yes (Other)
  Sender: JOHNSON AND JOHNSON
  Company Number: BR-JNJFOC-20241173068

PATIENT
  Age: 45 Year
  Sex: Male
  Weight: 80 kg

DRUGS (1)
  1. REMICADE [Suspect]
     Active Substance: INFLIXIMAB
     Indication: Colitis ulcerative
     Route: 041
     Dates: start: 20201001

REACTIONS (2)
  - Colitis ulcerative [Unknown]
  - SARS-CoV-2 test positive [Unknown]

NARRATIVE: CASE EVENT DATE: 20240915
